FAERS Safety Report 16675502 (Version 1)
Quarter: 2019Q3

REPORT INFORMATION
  Report Type: Report from Study
  Country: MX (occurrence: MX)
  Receive Date: 20190806
  Receipt Date: 20190806
  Transmission Date: 20191004
  Serious: Yes (Other)
  Sender: FDA-Public Use
  Company Number: PHHY2019MX182522

PATIENT
  Sex: Female

DRUGS (6)
  1. CONCOR [Concomitant]
     Active Substance: BISOPROLOL FUMARATE
     Indication: CARDIAC DISORDER
     Dosage: 0.5 DF (2.5 MG), QD
     Route: 048
     Dates: start: 201211
  2. DIGOXINA [Concomitant]
     Active Substance: DIGOXIN
     Indication: CARDIAC DISORDER
     Dosage: 250 MG FROM MONDAY TO FRIDAY
     Route: 048
     Dates: start: 2006
  3. ATORVASTATINA [Concomitant]
     Active Substance: ATORVASTATIN
     Indication: BLOOD CHOLESTEROL ABNORMAL
     Dosage: 1 DF, BID
     Route: 048
     Dates: start: 2006
  4. ENTRESTO [Suspect]
     Active Substance: SACUBITRIL\VALSARTAN
     Indication: PRODUCT USED FOR UNKNOWN INDICATION
     Route: 065
  5. ESPIRONOLACTONA [Concomitant]
     Active Substance: SPIRONOLACTONE
     Indication: FLUID RETENTION
     Dosage: 1 DF, QD
     Route: 048
     Dates: start: 2006
  6. BISOPROLOL [Concomitant]
     Active Substance: BISOPROLOL
     Indication: CARDIAC DISORDER
     Dosage: 0.5 DF, QD
     Route: 048
     Dates: start: 201201

REACTIONS (4)
  - Choking [Unknown]
  - Disease progression [Not Recovered/Not Resolved]
  - Cardiomegaly [Not Recovered/Not Resolved]
  - Ejection fraction decreased [Unknown]
